FAERS Safety Report 10053137 (Version 3)
Quarter: 2014Q2

REPORT INFORMATION
  Report Type: Report from Study
  Country: TR (occurrence: TR)
  Receive Date: 20140402
  Receipt Date: 20140507
  Transmission Date: 20141212
  Serious: Yes (Other)
  Sender: FDA-Public Use
  Company Number: PHHY2014TR038498

PATIENT
  Age: 21 Year
  Sex: Female
  Weight: 45 kg

DRUGS (1)
  1. EXJADE [Suspect]
     Indication: THALASSAEMIA BETA
     Dosage: 1500 MG, QD (DAILY)
     Route: 048
     Dates: start: 2013

REACTIONS (2)
  - Cholecystitis infective [Unknown]
  - Cholelithiasis [Unknown]
